FAERS Safety Report 4380911-6 (Version None)
Quarter: 2004Q2

REPORT INFORMATION
  Report Type: 
  Country: None (occurrence: None)
  Receive Date: 20040616
  Receipt Date: 20040603
  Transmission Date: 20050107
  Serious: Yes (Death, Hospitalization, Other)
  Sender: FDA-Public Use
  Company Number: 2004033749

PATIENT
  Age: 57 Year
  Sex: Male

DRUGS (2)
  1. VIAGRA [Suspect]
     Indication: ILL-DEFINED DISORDER
  2. ANTIHYPERTENSIVES [Concomitant]

REACTIONS (8)
  - ALCOHOL POISONING [None]
  - CARDIAC FAILURE [None]
  - FATIGUE [None]
  - MALNUTRITION [None]
  - MANIA [None]
  - SHOCK [None]
  - SUDDEN DEATH [None]
  - TREATMENT NONCOMPLIANCE [None]
